FAERS Safety Report 5318961-5 (Version None)
Quarter: 2007Q2

REPORT INFORMATION
  Report Type: 
  Country: None (occurrence: None)
  Receive Date: 20070508
  Receipt Date: 20070426
  Transmission Date: 20071010
  Serious: Yes (Death, Other)
  Sender: FDA-Public Use
  Company Number: US-AVENTIS-200713023US

PATIENT

DRUGS (2)
  1. LOVENOX [Suspect]
     Dosage: DOSE: UNK
     Dates: start: 20070401, end: 20070425
  2. INTEGRILIN [Suspect]
     Dosage: DOSE: 0.75/KG

REACTIONS (2)
  - CARDIAC ARREST [None]
  - CORONARY ARTERY THROMBOSIS [None]
